FAERS Safety Report 18243899 (Version 2)
Quarter: 2020Q3

REPORT INFORMATION
  Report Type: Report from Study
  Country: MX (occurrence: MX)
  Receive Date: 20200908
  Receipt Date: 20200923
  Transmission Date: 20201103
  Serious: Yes (Other)
  Sender: FDA-Public Use
  Company Number: NVSC2020MX243309

PATIENT
  Age: 77 Year
  Sex: Female
  Weight: 78 kg

DRUGS (1)
  1. CO?DIOVAN [Suspect]
     Active Substance: HYDROCHLOROTHIAZIDE\VALSARTAN
     Indication: HYPERTENSION
     Dosage: 1 DF, QD (80/12.5 MG) STARTED 20 YEARS AGO
     Route: 048

REACTIONS (5)
  - Accident [Unknown]
  - Maculopathy [Not Recovered/Not Resolved]
  - Fall [Unknown]
  - Visual impairment [Not Recovered/Not Resolved]
  - Lower limb fracture [Recovering/Resolving]

NARRATIVE: CASE EVENT DATE: 20190728
